FAERS Safety Report 10188110 (Version 1)
Quarter: 2014Q2

REPORT INFORMATION
  Report Type: Spontaneous
  Country: FR (occurrence: None)
  Receive Date: 20140520
  Receipt Date: 20140520
  Transmission Date: 20141212
  Serious: Yes (Hospitalization)
  Sender: FDA-Public Use
  Company Number: AUR-APL-2014-05785

PATIENT
  Age: 64 Year
  Sex: Male
  Weight: 98 kg

DRUGS (3)
  1. BISOPROLOL (BISOPROLOL) [Suspect]
     Indication: PRODUCT USED FOR UNKNOWN INDICATION
  2. PERINDOPRIL (PERINDOPRIL) [Suspect]
     Indication: PRODUCT USED FOR UNKNOWN INDICATION
  3. EPLERENONE [Suspect]
     Indication: PRODUCT USED FOR UNKNOWN INDICATION

REACTIONS (10)
  - Syncope [None]
  - Dizziness [None]
  - Headache [None]
  - Left ventricular failure [None]
  - Right ventricular failure [None]
  - Orthostatic hypotension [None]
  - Syncope [None]
  - Fall [None]
  - Conjunctival haemorrhage [None]
  - Periorbital contusion [None]
